FAERS Safety Report 9013308 (Version 1)
Quarter: 2013Q1

REPORT INFORMATION
  Report Type: Spontaneous
  Country: US (occurrence: None)
  Receive Date: 20130107
  Receipt Date: 20130107
  Transmission Date: 20140127
  Serious: Yes (Other)
  Sender: FDA-Public Use
  Company Number: None

PATIENT
  Sex: Male

DRUGS (10)
  1. PIOGLITAZONE HCL [Suspect]
     Dosage: 1 TABLET DAILY PO
     Route: 048
     Dates: start: 20121223, end: 20121231
  2. MS CONTIN [Concomitant]
  3. METOPROLOL [Concomitant]
  4. RANEXA [Concomitant]
  5. AMLODIPINE BESYLATE [Concomitant]
  6. NITRO [Concomitant]
  7. BENADRYL [Concomitant]
  8. CRESTOR [Concomitant]
  9. PERCOCET [Concomitant]
  10. ASPIRIN [Concomitant]

REACTIONS (4)
  - Pain in extremity [None]
  - Electrolyte imbalance [None]
  - Product odour abnormal [None]
  - Product quality issue [None]
